FAERS Safety Report 4281103-1 (Version None)
Quarter: 2004Q1

REPORT INFORMATION
  Report Type: 
  Country: None (occurrence: None)
  Receive Date: 20040108
  Receipt Date: 20030110
  Transmission Date: 20041129
  Serious: Yes (Death, Hospitalization)
  Sender: FDA-Public Use
  Company Number: HQ6148414JAN2003

PATIENT
  Sex: Female

DRUGS (1)
  1. PREMPRO [Suspect]
     Dosage: 0.625MG/DAILY, ORAL
     Route: 048
     Dates: start: 19991001, end: 20010315

REACTIONS (5)
  - BACK PAIN [None]
  - CHOLECYSTITIS [None]
  - MYOCARDIAL INFARCTION [None]
  - NAUSEA [None]
  - PULMONARY EMBOLISM [None]
